FAERS Safety Report 8484470-8 (Version None)
Quarter: 2012Q3

REPORT INFORMATION
  Report Type: 
  Country: None (occurrence: None)
  Receive Date: 20120703
  Receipt Date: 20120628
  Transmission Date: 20120928
  Serious: Yes (Hospitalization)
  Sender: FDA-Public Use
  Company Number: PHHY2012US056329

PATIENT
  Sex: Male
  Weight: 64.853 kg

DRUGS (6)
  1. EXJADE [Suspect]
     Indication: IRON OVERLOAD
     Dosage: 1500 MG, QD
     Route: 048
     Dates: start: 20070721, end: 20100922
  2. DILAUDID [Concomitant]
     Indication: PAIN
     Dosage: 4 MG, QD
     Route: 048
     Dates: start: 20050101, end: 20100923
  3. KADIAN [Concomitant]
     Indication: PAIN
     Dosage: 50 MG, BID
     Route: 048
     Dates: start: 20090707
  4. KLONOPIN [Concomitant]
     Indication: INSOMNIA
     Dosage: 0.5 MG, QD
     Route: 048
     Dates: start: 20040224
  5. FOLIC ACID [Concomitant]
     Indication: ANAEMIA
     Dosage: 1 MG, QD
     Route: 048
  6. DILAUDID [Concomitant]
     Dosage: 3 MG, Q3H
     Route: 042
     Dates: start: 20100923, end: 20101004

REACTIONS (3)
  - MUSCLE OEDEMA [None]
  - SICKLE CELL ANAEMIA WITH CRISIS [None]
  - HAEMOGLOBIN DECREASED [None]
